FAERS Safety Report 13444725 (Version 2)
Quarter: 2017Q2

REPORT INFORMATION
  Report Type: Spontaneous
  Country: JP (occurrence: JP)
  Receive Date: 20170414
  Receipt Date: 20170622
  Transmission Date: 20170830
  Serious: Yes (Hospitalization, Other)
  Sender: FDA-Public Use
  Company Number: JP-009507513-1704JPN000856J

PATIENT
  Age: 37 Year
  Sex: Male
  Weight: 50 kg

DRUGS (11)
  1. DENOSINE [Concomitant]
     Active Substance: GANCICLOVIR
     Indication: CYTOMEGALOVIRUS INFECTION
     Dosage: 250 MG, QD
     Route: 051
     Dates: start: 20160224, end: 20160302
  2. MEROPEN [Concomitant]
     Active Substance: MEROPENEM
     Indication: FEBRILE NEUTROPENIA
     Dosage: 1 G, TID
     Route: 051
     Dates: start: 20160202, end: 20160310
  3. PREDNISOLONE. [Concomitant]
     Active Substance: PREDNISOLONE
     Indication: ACUTE LYMPHOCYTIC LEUKAEMIA
     Dosage: 90 MG, QD
     Route: 048
     Dates: start: 20160202, end: 20160222
  4. MICAFUNGIN SODIUM [Concomitant]
     Active Substance: MICAFUNGIN SODIUM
     Indication: FEBRILE NEUTROPENIA
     Dosage: 150 MG, UNK
     Route: 041
     Dates: start: 20160210, end: 20160215
  5. TAKEPRON [Concomitant]
     Active Substance: LANSOPRAZOLE
     Indication: PROPHYLAXIS AGAINST GASTROINTESTINAL ULCER
     Dosage: 15 MG, QD
     Route: 048
     Dates: start: 20160126
  6. NEUTROGIN [Concomitant]
     Active Substance: LENOGRASTIM
     Indication: BONE MARROW FAILURE
     Dosage: 100 MICROGRAM, QD
     Route: 051
     Dates: start: 20160201, end: 20160221
  7. VICCLOX [Concomitant]
     Active Substance: ACYCLOVIR SODIUM
     Indication: PROPHYLAXIS
     Dosage: 200 MG, QD
     Route: 048
     Dates: start: 20151007, end: 20160224
  8. CANCIDAS [Suspect]
     Active Substance: CASPOFUNGIN ACETATE
     Indication: FEBRILE NEUTROPENIA
     Dosage: 50 MG, QD
     Route: 041
     Dates: start: 20160216, end: 20160321
  9. CANCIDAS [Suspect]
     Active Substance: CASPOFUNGIN ACETATE
     Indication: FEBRILE NEUTROPENIA
     Dosage: 70 MG, QD
     Route: 041
     Dates: start: 20160215, end: 20160215
  10. VANCOMYCIN [Concomitant]
     Active Substance: VANCOMYCIN
     Indication: FEBRILE NEUTROPENIA
     Dosage: 1 G, TID
     Route: 051
     Dates: start: 20160126, end: 20160222
  11. BAKTAR [Concomitant]
     Active Substance: SULFAMETHOXAZOLE\TRIMETHOPRIM
     Indication: PROPHYLAXIS
     Dosage: 1 DF, QD
     Route: 048
     Dates: start: 20160126

REACTIONS (5)
  - Transaminases increased [Recovered/Resolved]
  - Liver abscess [Recovering/Resolving]
  - Blood alkaline phosphatase increased [Recovered/Resolved]
  - C-reactive protein increased [Recovering/Resolving]
  - Pyrexia [Recovering/Resolving]

NARRATIVE: CASE EVENT DATE: 20160222
